FAERS Safety Report 19596684 (Version 4)
Quarter: 2021Q3

REPORT INFORMATION
  Report Type: Report from Study
  Country: US (occurrence: US)
  Receive Date: 20210723
  Receipt Date: 20210928
  Transmission Date: 20211014
  Serious: Yes (Other)
  Sender: FDA-Public Use
  Company Number: US-UCBSA-2021033660

PATIENT
  Age: 69 Year
  Sex: Female

DRUGS (3)
  1. MONOCYCLINE [Concomitant]
     Active Substance: DOXYCYCLINE
     Indication: RASH
  2. CERTOLIZUMAB PEGOL [Suspect]
     Active Substance: CERTOLIZUMAB PEGOL
     Indication: RHEUMATOID ARTHRITIS
     Dosage: 400 MILLIGRAM, EV 2 WEEKS(QOW)
     Dates: start: 20210624
  3. MONOCYCLINE [Concomitant]
     Active Substance: DOXYCYCLINE
     Indication: ERYTHEMA

REACTIONS (7)
  - Rash [Unknown]
  - Injection site pain [Not Recovered/Not Resolved]
  - Herpes zoster [Not Recovered/Not Resolved]
  - Rheumatoid arthritis [Unknown]
  - Arthralgia [Not Recovered/Not Resolved]
  - Urinary incontinence [Not Recovered/Not Resolved]
  - Erythema [Unknown]

NARRATIVE: CASE EVENT DATE: 2021
